FAERS Safety Report 4596281-4 (Version None)
Quarter: 2005Q1

REPORT INFORMATION
  Report Type: 
  Country: None (occurrence: None)
  Receive Date: 20050228
  Receipt Date: 20050216
  Transmission Date: 20050727
  Serious: Yes (Other)
  Sender: FDA-Public Use
  Company Number: C-05-0013

PATIENT
  Age: 78 Year
  Sex: Male
  Weight: 83.0083 kg

DRUGS (10)
  1. HYDROCODONE AND HOMATROPINE SYRUP, MGP PRODUCT CODE 8455 [Suspect]
     Indication: COUGH
     Dosage: 1-1/2 TSP TAKEN ONCE ORALLY
     Route: 048
     Dates: start: 20050215
  2. HYDROCODONE AND HOMATROPINE SYRUP, MGP PRODUCT CODE 8455 [Suspect]
     Indication: HYPERSENSITIVITY
     Dosage: 1-1/2 TSP TAKEN ONCE ORALLY
     Route: 048
     Dates: start: 20050215
  3. HYDROCODONE AND HOMATROPINE SYRUP, MGP PRODUCT CODE 8455 [Suspect]
     Indication: NASAL CONGESTION
     Dosage: 1-1/2 TSP TAKEN ONCE ORALLY
     Route: 048
     Dates: start: 20050215
  4. DELSYM [Concomitant]
  5. ATENOLOL [Concomitant]
  6. ALLOPURINOL [Concomitant]
  7. ANGIOTENSIN [Concomitant]
  8. ZOCOR [Concomitant]
  9. NIASPAN [Concomitant]
  10. LIBRIUM [Concomitant]

REACTIONS (3)
  - CONDITION AGGRAVATED [None]
  - COUGH [None]
  - DYSPNOEA [None]
